FAERS Safety Report 5358607-3 (Version None)
Quarter: 2007Q2

REPORT INFORMATION
  Report Type: 
  Country: None (occurrence: None)
  Receive Date: 20070614
  Receipt Date: 20070614
  Transmission Date: 20071010
  Serious: Yes (Other)
  Sender: FDA-Public Use
  Company Number: None

PATIENT
  Sex: Female

DRUGS (9)
  1. REVLIMID [Suspect]
     Indication: MULTIPLE MYELOMA
     Dosage: 25MG DAILY 21D/28D PO
     Route: 048
  2. DEXAMETHASONE 0.5MG TAB [Concomitant]
  3. AREDIA [Concomitant]
  4. OMEPRAZOLE [Concomitant]
  5. LOVASTATIN [Concomitant]
  6. METOPROLOL SUCCINATE [Concomitant]
  7. HYDROCORTISONE SUPPOSITORY [Concomitant]
  8. EPOGEN [Concomitant]
  9. ACTOS [Concomitant]

REACTIONS (3)
  - BLOOD IMMUNOGLOBULIN A DECREASED [None]
  - DEEP VEIN THROMBOSIS [None]
  - PNEUMONIA [None]
